FAERS Safety Report 6825439-6 (Version None)
Quarter: 2010Q3

REPORT INFORMATION
  Report Type: 
  Country: None (occurrence: None)
  Receive Date: 20100708
  Receipt Date: 20061228
  Transmission Date: 20110219
  Serious: No
  Sender: FDA-Public Use
  Company Number: US-PFIZER INC-2007001431

PATIENT
  Sex: Female
  Weight: 108.86 kg

DRUGS (21)
  1. CHANTIX [Suspect]
     Indication: SMOKING CESSATION THERAPY
     Route: 048
     Dates: start: 20061201
  2. GABAPENTIN [Concomitant]
     Route: 048
  3. KLOR-CON [Concomitant]
     Route: 048
  4. METFORMIN HCL [Concomitant]
     Route: 048
  5. AVANDARYL [Concomitant]
     Indication: DIABETES MELLITUS
     Route: 048
  6. INSULIN DETEMIR [Concomitant]
     Indication: DIABETES MELLITUS
  7. FUROSEMIDE [Concomitant]
     Route: 048
  8. ZETIA [Concomitant]
     Route: 048
  9. BENICAR [Concomitant]
     Route: 048
  10. CLONIDINE [Concomitant]
     Route: 048
  11. SKELAXIN [Concomitant]
     Route: 048
  12. ACETYLSALICYLIC ACID [Concomitant]
     Route: 048
  13. TENEX [Concomitant]
     Route: 048
  14. NORVASC [Concomitant]
     Route: 048
  15. ALPRAZOLAM [Concomitant]
     Route: 048
  16. SYNTHROID [Concomitant]
     Route: 048
  17. TYLENOL [Concomitant]
     Route: 048
  18. CELEBREX [Concomitant]
     Indication: ARTHRITIS
     Route: 048
  19. CELEBREX [Concomitant]
     Indication: FIBROMYALGIA
  20. TRAMADOL [Concomitant]
     Route: 048
  21. MUCINEX [Concomitant]
     Route: 048

REACTIONS (3)
  - NAUSEA [None]
  - NIGHTMARE [None]
  - SINUSITIS [None]
